FAERS Safety Report 9683942 (Version 1)
Quarter: 2013Q4

REPORT INFORMATION
  Report Type: Spontaneous
  Country: US (occurrence: None)
  Receive Date: 20131111
  Receipt Date: 20131111
  Transmission Date: 20140711
  Serious: No
  Sender: FDA-Public Use
  Company Number: None

PATIENT
  Age: 45 Year
  Sex: Female
  Weight: 81.65 kg

DRUGS (1)
  1. ORACEA [Suspect]
     Indication: ACNE
     Route: 048
     Dates: start: 20131015, end: 20131101

REACTIONS (5)
  - Myalgia [None]
  - Arthralgia [None]
  - Arthralgia [None]
  - Arthralgia [None]
  - Mobility decreased [None]
